FAERS Safety Report 12685709 (Version 2)
Quarter: 2016Q4

REPORT INFORMATION
  Report Type: Report from Study
  Country: US (occurrence: US)
  Receive Date: 20160825
  Receipt Date: 20161121
  Transmission Date: 20170207
  Serious: Yes (Other)
  Sender: FDA-Public Use
  Company Number: US-AMGEN-USASL2016109491

PATIENT
  Age: 64 Year
  Sex: Female

DRUGS (1)
  1. ENBREL [Suspect]
     Active Substance: ETANERCEPT
     Indication: RHEUMATOID ARTHRITIS
     Dosage: 50 MG, UNK
     Route: 065

REACTIONS (6)
  - Laceration [Recovering/Resolving]
  - Fall [Unknown]
  - Drug effect incomplete [Unknown]
  - Contusion [Recovering/Resolving]
  - Wound infection [Recovering/Resolving]
  - Arthralgia [Recovering/Resolving]
